FAERS Safety Report 8047711-7 (Version None)
Quarter: 2012Q1

REPORT INFORMATION
  Report Type: 
  Country: None (occurrence: None)
  Receive Date: 20120116
  Receipt Date: 20120110
  Transmission Date: 20120608
  Serious: Yes (Other)
  Sender: FDA-Public Use
  Company Number: DK-JNJFOC-20111000315

PATIENT
  Sex: Female

DRUGS (4)
  1. CONCERTA [Suspect]
     Dosage: 36MG IN MORNING AND 18MG IN EVENING
     Route: 065
     Dates: start: 20100621
  2. CONCERTA [Suspect]
     Dosage: 36MG IN MORNING AND 18MG IN EVENING
     Route: 065
     Dates: start: 20110228
  3. CONCERTA [Suspect]
     Indication: ATTENTION DEFICIT/HYPERACTIVITY DISORDER
     Dosage: 54MG IN MORNING AND 18MG IN EVENING
     Route: 065
     Dates: start: 20100901
  4. CONCERTA [Suspect]
     Route: 065

REACTIONS (1)
  - GLAUCOMA [None]
